FAERS Safety Report 4775521-2 (Version None)
Quarter: 2005Q3

REPORT INFORMATION
  Report Type: 
  Country: None (occurrence: None)
  Receive Date: 20050922
  Receipt Date: 20050912
  Transmission Date: 20060218
  Serious: Yes (Death, Hospitalization, Other)
  Sender: FDA-Public Use
  Company Number: NSADSS2003023540

PATIENT
  Sex: Male

DRUGS (15)
  1. REMICADE [Suspect]
     Route: 041
  2. REMICADE [Suspect]
     Indication: RHEUMATOID ARTHRITIS
     Route: 041
  3. IRON [Concomitant]
  4. ASCORBIC ACID [Concomitant]
  5. PREDNISONE [Concomitant]
  6. HYDROCODONE [Concomitant]
     Dosage: 10 MG
  7. MULTI-VITAMINS [Concomitant]
  8. MULTI-VITAMINS [Concomitant]
  9. MULTI-VITAMINS [Concomitant]
  10. MULTI-VITAMINS [Concomitant]
  11. MULTI-VITAMINS [Concomitant]
  12. MULTI-VITAMINS [Concomitant]
  13. MULTI-VITAMINS [Concomitant]
  14. MULTI-VITAMINS [Concomitant]
  15. ASPIRIN [Concomitant]

REACTIONS (4)
  - HAEMORRHAGE [None]
  - INFECTION [None]
  - PULMONARY EMBOLISM [None]
  - SKIN INFECTION [None]
